FAERS Safety Report 13271327 (Version 3)
Quarter: 2017Q4

REPORT INFORMATION
  Report Type: Spontaneous
  Country: FR (occurrence: FR)
  Receive Date: 20170226
  Receipt Date: 20171013
  Transmission Date: 20180320
  Serious: Yes (Life-Threatening)
  Sender: FDA-Public Use
  Company Number: FR-ROCHE-1897033

PATIENT
  Age: 67 Year
  Sex: Female
  Weight: 82 kg

DRUGS (5)
  1. PERJETA [Suspect]
     Active Substance: PERTUZUMAB
     Indication: BREAST CANCER
     Dosage: ON 12/DEC/2016, FIRST COURSE?ON 02/JAN/2017, SECOND COURSE
     Route: 042
     Dates: start: 20170207, end: 20170207
  2. ONDANSETRON [Concomitant]
     Active Substance: ONDANSETRON
  3. TAXOTERE [Concomitant]
     Active Substance: DOCETAXEL
  4. HERCEPTIN [Suspect]
     Active Substance: TRASTUZUMAB
     Indication: BREAST CANCER
     Dosage: ON 12/DEC/2016, FIRST COURSE?ON 02/JAN/2017, SECOND COURSE
     Route: 042
     Dates: start: 20170207, end: 20170207
  5. SOLU-MEDROL [Suspect]
     Active Substance: METHYLPREDNISOLONE SODIUM SUCCINATE
     Indication: BREAST CANCER
     Dosage: ON 12/DEC/2016, FIRST COURSE?ON 02/JAN/2017, SECOND COURSE
     Route: 042
     Dates: start: 20170207, end: 20170207

REACTIONS (5)
  - Hypotension [Recovered/Resolved]
  - Cyanosis [Recovered/Resolved]
  - Hypertension [Recovered/Resolved]
  - Rash [Recovered/Resolved]
  - Eyelid oedema [Recovered/Resolved]

NARRATIVE: CASE EVENT DATE: 20170207
